FAERS Safety Report 8552305-0 (Version None)
Quarter: 2012Q3

REPORT INFORMATION
  Report Type: 
  Country: None (occurrence: None)
  Receive Date: 20120723
  Receipt Date: 20120723
  Transmission Date: 20120928
  Serious: Yes (Hospitalization)
  Sender: FDA-Public Use
  Company Number: None

PATIENT
  Age: 64 Year
  Sex: Male
  Weight: 124.1 kg

DRUGS (2)
  1. HEPARIN SODIUM 1,000 UNITS IN DEXTROSE 5% [Suspect]
     Dosage: IV
     Route: 042
     Dates: start: 20120304, end: 20120309
  2. CLOPIDOGREL [Suspect]
     Dosage: PO
     Route: 048
     Dates: start: 20120304

REACTIONS (4)
  - RESPIRATORY DISORDER [None]
  - POST PROCEDURAL HAEMATOMA [None]
  - GASTRIC HAEMORRHAGE [None]
  - ANAEMIA [None]
